FAERS Safety Report 7351824-2 (Version None)
Quarter: 2011Q1

REPORT INFORMATION
  Report Type: 
  Country: None (occurrence: None)
  Receive Date: 20110315
  Receipt Date: 20110216
  Transmission Date: 20110831
  Serious: Yes (Hospitalization, Other)
  Sender: FDA-Public Use
  Company Number: US-BAYER-201012340NA

PATIENT
  Sex: Female

DRUGS (4)
  1. HYDROCODONE BITARTRATE [Concomitant]
  2. CEPHALEXIN [Concomitant]
  3. METFORMIN [Concomitant]
  4. YASMIN [Suspect]
     Indication: MENSTRUAL DISORDER
     Dosage: 1 DF (DAILY DOSE), QD, ORAL
     Route: 048
     Dates: start: 20050701, end: 20060924

REACTIONS (7)
  - CHOLECYSTITIS CHRONIC [None]
  - DYSPNOEA [None]
  - PULMONARY EMBOLISM [None]
  - ABDOMINAL PAIN [None]
  - PULMONARY ARTERIAL HYPERTENSION [None]
  - ABDOMINAL PAIN UPPER [None]
  - CHOLELITHIASIS [None]
